FAERS Safety Report 23322375 (Version 1)
Quarter: 2023Q4

REPORT INFORMATION
  Report Type: Spontaneous
  Country: CA (occurrence: CA)
  Receive Date: 20231220
  Receipt Date: 20231220
  Transmission Date: 20240110
  Serious: Yes (Life-Threatening, Hospitalization)
  Sender: FDA-Public Use
  Company Number: CA-Eisai Medical Research-EC-2023-140381

PATIENT
  Age: 37 Year
  Sex: Female

DRUGS (22)
  1. FYCOMPA [Suspect]
     Active Substance: PERAMPANEL
     Indication: Status epilepticus
     Dosage: DOSE AND FREQUENCY UNKNOWN
     Route: 048
  2. AZATHIOPRINE [Suspect]
     Active Substance: AZATHIOPRINE
     Indication: Status epilepticus
     Route: 065
  3. CLOBAZAM [Suspect]
     Active Substance: CLOBAZAM
     Indication: Status epilepticus
     Dosage: DOSE AND FREQUENCY UNKNOWN
     Route: 065
  4. ESLICARBAZEPINE ACETATE [Suspect]
     Active Substance: ESLICARBAZEPINE ACETATE
     Indication: Status epilepticus
     Dosage: DOSE AND FREQUENCY UNKNOWN
     Route: 065
  5. HUMAN IMMUNOGLOBULIN G [Suspect]
     Active Substance: HUMAN IMMUNOGLOBULIN G
     Indication: Status epilepticus
     Route: 041
  6. KETAMINE [Suspect]
     Active Substance: KETAMINE
     Indication: Status epilepticus
     Dosage: DOSE AND FREQUENCY UNKNOWN
     Route: 065
  7. LACOSAMIDE [Suspect]
     Active Substance: LACOSAMIDE
     Indication: Status epilepticus
     Dosage: DOSE AND FREQUENCY UNKNOWN
     Route: 065
  8. LEVETIRACETAM [Suspect]
     Active Substance: LEVETIRACETAM
     Indication: Status epilepticus
     Dosage: DOSE AND FREQUENCY UNKNOWN
     Route: 065
  9. LORAZEPAM [Suspect]
     Active Substance: LORAZEPAM
     Indication: Status epilepticus
     Dosage: DOSE AND FREQUENCY UNKNOWN
     Route: 065
  10. METHYLPREDNISOLONE [Suspect]
     Active Substance: METHYLPREDNISOLONE
     Indication: Status epilepticus
     Dosage: DOSE AND FREQUENCY UNKNOWN
     Route: 065
  11. MIDAZOLAM [Suspect]
     Active Substance: MIDAZOLAM
     Indication: Status epilepticus
     Dosage: DOSE AND FREQUENCY UNKNOWN
     Route: 065
  12. PHENOBARBITAL [Suspect]
     Active Substance: PHENOBARBITAL
     Indication: Status epilepticus
     Dosage: DOSE AND FREQUENCY UNKNOWN
     Route: 065
  13. PHENYTOIN [Suspect]
     Active Substance: PHENYTOIN
     Indication: Status epilepticus
     Dosage: DOSE AND FREQUENCY UNKNOWN
     Route: 065
  14. PROPOFOL [Suspect]
     Active Substance: PROPOFOL
     Indication: Status epilepticus
     Dosage: DOSE AND FREQUENCY UNKNOWN
     Route: 065
  15. RITUXIMAB [Suspect]
     Active Substance: RITUXIMAB
     Indication: Status epilepticus
     Route: 041
  16. VALPROIC ACID [Suspect]
     Active Substance: VALPROIC ACID
     Indication: Status epilepticus
     Dosage: DOSE AND FREQUENCY UNKNOWN
     Route: 065
  17. LAMOTRIGINE [Suspect]
     Active Substance: LAMOTRIGINE
     Indication: Status epilepticus
     Dosage: UNKNOWN DOSE AND FREQUENCY
     Route: 048
  18. APTIOM [Suspect]
     Active Substance: ESLICARBAZEPINE ACETATE
     Indication: New onset refractory status epilepticus
     Dosage: UNKNOWN DOSE AND FREQUENCY
     Route: 048
  19. ACYCLOVIR [Concomitant]
     Active Substance: ACYCLOVIR
  20. CEFTRIAXONE [Concomitant]
     Active Substance: CEFTRIAXONE\CEFTRIAXONE SODIUM
  21. PIPERACILLIN SODIUM\TAZOBACTAM SODIUM [Concomitant]
     Active Substance: PIPERACILLIN SODIUM\TAZOBACTAM SODIUM
  22. VANCOMYCIN [Concomitant]
     Active Substance: VANCOMYCIN

REACTIONS (2)
  - Drug ineffective [Unknown]
  - Product use in unapproved indication [Unknown]
